FAERS Safety Report 5477774-4 (Version None)
Quarter: 2007Q4

REPORT INFORMATION
  Report Type: 
  Country: None (occurrence: None)
  Receive Date: 20071002
  Receipt Date: 20071002
  Transmission Date: 20080405
  Serious: No
  Sender: FDA-Public Use
  Company Number: None

PATIENT
  Sex: Female
  Weight: 71.6683 kg

DRUGS (1)
  1. LEVAQUIN [Suspect]
     Indication: PNEUMONIA
     Dosage: 1 DAILY PO
     Route: 048
     Dates: start: 20070823, end: 20070830

REACTIONS (3)
  - ARTHRALGIA [None]
  - PARAESTHESIA [None]
  - PARAESTHESIA ORAL [None]
